FAERS Safety Report 9235132 (Version 1)
Quarter: 2013Q2

REPORT INFORMATION
  Report Type: Spontaneous
  Country: JP (occurrence: JP)
  Receive Date: 20130416
  Receipt Date: 20130416
  Transmission Date: 20140414
  Serious: Yes (Other)
  Sender: FDA-Public Use
  Company Number: JP-009507513-1304JPN005957

PATIENT
  Sex: 0

DRUGS (1)
  1. CANCIDAS FOR INTRAVENOUS DRIP INFUSION 50MG [Suspect]
     Dosage: DAILY DOSE UNKNOWN
     Route: 041

REACTIONS (1)
  - Pancreatitis [Unknown]
